FAERS Safety Report 19880439 (Version 1)
Quarter: 2021Q3

REPORT INFORMATION
  Report Type: Spontaneous
  Country: CA (occurrence: CA)
  Receive Date: 20210924
  Receipt Date: 20210924
  Transmission Date: 20211014
  Serious: Yes (Other)
  Sender: FDA-Public Use
  Company Number: CA-SAMSUNG BIOEPIS-SB-2021-10865

PATIENT
  Age: 51 Year
  Sex: Female
  Weight: 78 kg

DRUGS (1)
  1. INFLIXIMAB [Suspect]
     Active Substance: INFLIXIMAB
     Indication: ANKYLOSING SPONDYLITIS
     Route: 042

REACTIONS (7)
  - Pustular psoriasis [Unknown]
  - Off label use [Unknown]
  - Product use issue [Unknown]
  - Acarodermatitis [Unknown]
  - Product dose omission issue [Unknown]
  - Arthropathy [Unknown]
  - Inappropriate schedule of product administration [Unknown]
